FAERS Safety Report 6046903-6 (Version None)
Quarter: 2009Q1

REPORT INFORMATION
  Report Type: 
  Country: None (occurrence: None)
  Receive Date: 20090122
  Receipt Date: 20090116
  Transmission Date: 20090719
  Serious: Yes (Other)
  Sender: FDA-Public Use
  Company Number: D0059975A

PATIENT
  Age: 21 Year
  Sex: Female
  Weight: 60 kg

DRUGS (2)
  1. LAMICTAL [Suspect]
     Indication: EPILEPSY
     Dosage: 300MG PER DAY
     Route: 065
     Dates: start: 20040101
  2. ACETAMINOPHEN [Suspect]
     Indication: HEADACHE
     Route: 065

REACTIONS (2)
  - CONVULSION [None]
  - DRUG INTERACTION [None]
